FAERS Safety Report 24685591 (Version 1)
Quarter: 2024Q4

REPORT INFORMATION
  Report Type: Spontaneous
  Country: US (occurrence: None)
  Receive Date: 20241127
  Receipt Date: 20241127
  Transmission Date: 20250115
  Serious: Yes (Hospitalization, Other)
  Sender: Public
  Company Number: None

PATIENT
  Age: 47 Year
  Sex: Female

DRUGS (2)
  1. OPSUMIT [Suspect]
     Active Substance: MACITENTAN
     Indication: Pulmonary arterial hypertension
     Dosage: FREQUENCY : DAILY;?
     Route: 048
     Dates: start: 202008
  2. EPOPROSTENOL [Concomitant]
     Active Substance: EPOPROSTENOL

REACTIONS (4)
  - Dyspnoea [None]
  - Chest pain [None]
  - Back pain [None]
  - Fall [None]

NARRATIVE: CASE EVENT DATE: 20241121
